FAERS Safety Report 10086660 (Version 1)
Quarter: 2014Q2

REPORT INFORMATION
  Report Type: Other
  Country: GB (occurrence: GB)
  Receive Date: 20140418
  Receipt Date: 20140418
  Transmission Date: 20141212
  Serious: Yes (Life-Threatening, Other)
  Sender: FDA-Public Use
  Company Number: GB-PERRIGO-14GB003971

PATIENT
  Age: 50 Year
  Sex: Male
  Weight: 90.7 kg

DRUGS (5)
  1. LOPERAMIDE 16028/0032 2 MG [Suspect]
     Indication: IRRITABLE BOWEL SYNDROME
     Dosage: 2 MG, UNK
     Route: 048
     Dates: start: 201312, end: 201312
  2. DOMPERIDONE [Concomitant]
     Indication: ABDOMINAL DISCOMFORT
     Dosage: 10 MG, PRN
     Route: 048
  3. LANSOPRAZOLE [Concomitant]
     Indication: HIATUS HERNIA
     Dosage: 30 MG, QD
     Route: 048
  4. MIRTAZAPINE [Concomitant]
     Indication: ANXIETY
     Dosage: 30 MG, QD
     Route: 048
  5. PROPRANOLOL [Concomitant]
     Indication: ANXIETY
     Dosage: 80 MG, QD
     Route: 048

REACTIONS (1)
  - Anxiety [Recovered/Resolved]
